FAERS Safety Report 19740179 (Version 1)
Quarter: 2021Q3

REPORT INFORMATION
  Report Type: Report from Study
  Country: US (occurrence: US)
  Receive Date: 20210824
  Receipt Date: 20210824
  Transmission Date: 20211014
  Serious: Yes (Hospitalization, Other)
  Sender: FDA-Public Use
  Company Number: US-EMD SERONO-9101171

PATIENT
  Sex: Female

DRUGS (1)
  1. REBIF [Suspect]
     Active Substance: INTERFERON BETA-1A
     Indication: PRODUCT USED FOR UNKNOWN INDICATION
     Route: 058
     Dates: start: 20131220

REACTIONS (9)
  - Uterine mass [Unknown]
  - Muscular weakness [Not Recovered/Not Resolved]
  - Urinary tract infection [Unknown]
  - Uterine dilation and curettage [Unknown]
  - Post procedural haemorrhage [Unknown]
  - Balance disorder [Unknown]
  - Blood urine present [Unknown]
  - Fall [Unknown]
  - Injection site urticaria [Unknown]
